FAERS Safety Report 9500699 (Version 1)
Quarter: 2013Q3

REPORT INFORMATION
  Report Type: Spontaneous
  Country: ES (occurrence: ES)
  Receive Date: 20130905
  Receipt Date: 20130905
  Transmission Date: 20140515
  Serious: Yes (Other)
  Sender: FDA-Public Use
  Company Number: ES-PFIZER INC-2013251749

PATIENT
  Age: 73 Year
  Sex: Male

DRUGS (10)
  1. ZYVOXID [Suspect]
     Indication: ARTHRITIS BACTERIAL
     Dosage: 600 MG, 2X/DAY
     Route: 048
     Dates: start: 20130626, end: 20130716
  2. PARACETAMOL [Concomitant]
     Route: 048
  3. ENALAPRIL [Concomitant]
     Dosage: 20 MG, 1X/DAY
     Route: 048
  4. OMEPRAZOLE [Concomitant]
     Dosage: 20 MG, 1X/DAY
     Route: 048
  5. LEVOFLOXACIN [Concomitant]
     Dosage: 750 MG, 1X/DAY
     Dates: start: 20130705
  6. TRAMADOL [Concomitant]
     Route: 048
  7. IBUPROFEN [Concomitant]
     Route: 048
  8. CLEXANE [Concomitant]
     Dosage: 40 MG, UNK
     Route: 058
  9. DUODART [Concomitant]
     Dosage: 1 DF, 1X/DAY
     Route: 048
  10. YATROX [Concomitant]
     Dosage: 4 MG, UNK
     Route: 048

REACTIONS (2)
  - Tremor [Recovered/Resolved]
  - Tongue discolouration [Recovered/Resolved]
